FAERS Safety Report 24715919 (Version 1)
Quarter: 2024Q4

REPORT INFORMATION
  Report Type: Spontaneous
  Country: US (occurrence: US)
  Receive Date: 20241210
  Receipt Date: 20241210
  Transmission Date: 20250115
  Serious: No
  Sender: CIPLA
  Company Number: US-CIPLA LTD.-2024US13097

PATIENT

DRUGS (2)
  1. LANREOTIDE ACETATE [Suspect]
     Active Substance: LANREOTIDE ACETATE
     Indication: Neuroendocrine tumour
     Dosage: UNK
     Route: 065
     Dates: start: 20220307
  2. LANREOTIDE ACETATE [Suspect]
     Active Substance: LANREOTIDE ACETATE
     Dosage: UNK
     Route: 065
     Dates: start: 202409

REACTIONS (3)
  - Drug dose omission by device [Recovered/Resolved]
  - Device issue [Recovered/Resolved]
  - Device safety feature issue [Unknown]

NARRATIVE: CASE EVENT DATE: 20240101
